FAERS Safety Report 4408429-2 (Version None)
Quarter: 2004Q3

REPORT INFORMATION
  Report Type: 
  Country: None (occurrence: None)
  Receive Date: 20040726
  Receipt Date: 20040719
  Transmission Date: 20050211
  Serious: Yes (Hospitalization)
  Sender: FDA-Public Use
  Company Number: 2004SE02053

PATIENT
  Age: 75 Year
  Sex: Male

DRUGS (7)
  1. ROSUVASTATIN [Suspect]
     Indication: HYPERCHOLESTEROLAEMIA
     Dates: start: 20040223, end: 20040414
  2. FURON [Concomitant]
  3. VEROSPIRON [Concomitant]
  4. BETALOC ZOK ^ASTRA^ [Concomitant]
  5. ANOPYRIN [Concomitant]
  6. ACCUPRO [Concomitant]
  7. MINIDIAB [Concomitant]

REACTIONS (2)
  - CHRONIC OBSTRUCTIVE AIRWAYS DISEASE EXACERBATED [None]
  - MYALGIA [None]
